FAERS Safety Report 26140069 (Version 1)
Quarter: 2025Q4

REPORT INFORMATION
  Report Type: Spontaneous
  Country: US (occurrence: None)
  Receive Date: 20251209
  Receipt Date: 20251209
  Transmission Date: 20260117
  Serious: Yes (Other)
  Sender: FDA-CTU
  Company Number: None

PATIENT
  Age: 78 Year
  Sex: Female

DRUGS (10)
  1. ACTHAR [Suspect]
     Active Substance: CORTICOTROPIN
     Indication: Multiple sclerosis
     Dosage: 1 ML WEEKLY INTRAMUSCULAR
     Route: 030
     Dates: start: 20240123
  2. KETOROLAC 0.5% OPHTH SOLUTION [Concomitant]
  3. MOXIFLOXACIN 0.5% OPHTH SOLUTION [Concomitant]
  4. PREDNISONE [Concomitant]
     Active Substance: PREDNISONE
  5. LISINOPRIL [Concomitant]
     Active Substance: LISINOPRIL
  6. SERTRALINE [Concomitant]
     Active Substance: SERTRALINE HYDROCHLORIDE
  7. LEVETIRACETAM [Concomitant]
     Active Substance: LEVETIRACETAM
  8. GABAPENTIN [Concomitant]
     Active Substance: GABAPENTIN
  9. LAMOTRIGINE [Concomitant]
     Active Substance: LAMOTRIGINE
  10. ALPRAZOLAM [Concomitant]
     Active Substance: ALPRAZOLAM

REACTIONS (2)
  - Wrong technique in device usage process [None]
  - Product sterility issue [None]
